FAERS Safety Report 6306365-8 (Version None)
Quarter: 2009Q3

REPORT INFORMATION
  Report Type: 
  Country: None (occurrence: None)
  Receive Date: 20090812
  Receipt Date: 20090729
  Transmission Date: 20100115
  Serious: Yes (Hospitalization)
  Sender: FDA-Public Use
  Company Number: FR-EISAI INC.-E3810-03037-SPO-FR

PATIENT
  Sex: Female

DRUGS (8)
  1. PARIET (RABEPRAZOLE) [Suspect]
     Route: 048
     Dates: end: 20090620
  2. SPIRONOLACTONE [Suspect]
     Route: 048
  3. ACEBUTOLOL HYDROCHLORIDE [Concomitant]
  4. SERMION [Concomitant]
  5. PIASCLEDINE [Concomitant]
  6. CARBOSYMAG [Concomitant]
  7. TROXERUTIN [Concomitant]
  8. GAVISCON [Concomitant]

REACTIONS (6)
  - ABDOMINAL PAIN [None]
  - CONFUSIONAL STATE [None]
  - ELECTROLYTE IMBALANCE [None]
  - HYPONATRAEMIA [None]
  - URINARY TRACT INFECTION [None]
  - VOMITING [None]
